FAERS Safety Report 24402882 (Version 1)
Quarter: 2024Q4

REPORT INFORMATION
  Report Type: Report from Study
  Country: US (occurrence: US)
  Receive Date: 20241007
  Receipt Date: 20241007
  Transmission Date: 20250114
  Serious: Yes (Hospitalization)
  Sender: ALEXION PHARMACEUTICALS
  Company Number: US-AstraZeneca-CH-00717623A

PATIENT
  Age: 46 Year
  Weight: 102.04 kg

DRUGS (8)
  1. VOYDEYA [Suspect]
     Active Substance: DANICOPAN
     Indication: Paroxysmal nocturnal haemoglobinuria
     Dosage: 150 MILLIGRAM, TID
  2. VOYDEYA [Suspect]
     Active Substance: DANICOPAN
     Dosage: 150 MILLIGRAM, TID
  3. VOYDEYA [Suspect]
     Active Substance: DANICOPAN
     Dosage: 150 MILLIGRAM, TID
  4. VOYDEYA [Suspect]
     Active Substance: DANICOPAN
     Dosage: 150 MILLIGRAM, TID
  5. ULTOMIRIS [Suspect]
     Active Substance: RAVULIZUMAB-CWVZ
     Dosage: UNK
     Route: 065
  6. ULTOMIRIS [Suspect]
     Active Substance: RAVULIZUMAB-CWVZ
     Dosage: UNK
  7. ULTOMIRIS [Suspect]
     Active Substance: RAVULIZUMAB-CWVZ
     Dosage: UNK
     Route: 065
  8. ULTOMIRIS [Suspect]
     Active Substance: RAVULIZUMAB-CWVZ
     Dosage: UNK

REACTIONS (1)
  - Abdominal pain [Unknown]
